FAERS Safety Report 9458379 (Version 2)
Quarter: 2013Q3

REPORT INFORMATION
  Report Type: Spontaneous
  Country: DE (occurrence: DE)
  Receive Date: 20130814
  Receipt Date: 20130830
  Transmission Date: 20140515
  Serious: Yes (Life-Threatening, Hospitalization, Other)
  Sender: FDA-Public Use
  Company Number: DE-009507513-1308DEU005451

PATIENT
  Age: 70 Year
  Sex: Male

DRUGS (10)
  1. JANUMET [Suspect]
     Indication: TYPE 2 DIABETES MELLITUS
     Dosage: 2 X1 TABLET QD; TOTAL DAILY DOSE:100/2000 MG
     Route: 048
     Dates: start: 201304, end: 201307
  2. JANUVIA [Suspect]
     Indication: TYPE 2 DIABETES MELLITUS
     Dosage: 100 MG, BID
     Route: 048
     Dates: start: 201104, end: 201304
  3. CANDESARTAN [Concomitant]
     Indication: HYPERTENSION
     Dosage: 32 MG, QD
     Dates: start: 2012
  4. HYDROCHLOROTHIAZIDE [Concomitant]
     Indication: HYPERTENSION
     Dosage: 25 MG, QD
     Route: 048
     Dates: start: 2007, end: 2007
  5. METOPROLOL [Concomitant]
     Indication: CORONARY ARTERY DISEASE
     Dosage: 95 MG, QD
  6. METOPROLOL [Concomitant]
     Indication: HYPERTENSION
  7. PANTOPRAZOLE [Concomitant]
  8. ALLOPURINOL [Concomitant]
     Indication: HYPERURICAEMIA
     Dosage: 100 MG, QD
     Dates: start: 2009
  9. LACTULOSE [Concomitant]
     Indication: CONSTIPATION
     Dosage: UNK
     Dates: start: 2013
  10. LANTUS [Concomitant]
     Indication: DIABETES MELLITUS
     Dosage: UNK
     Dates: start: 2012

REACTIONS (2)
  - Plasmacytoma [Not Recovered/Not Resolved]
  - Metastases to bone [Not Recovered/Not Resolved]
